FAERS Safety Report 14258329 (Version 1)
Quarter: 2017Q4

REPORT INFORMATION
  Report Type: Spontaneous
  Country: US (occurrence: US)
  Receive Date: 20171207
  Receipt Date: 20171207
  Transmission Date: 20180321
  Serious: Yes (Hospitalization, Other)
  Sender: FDA-Public Use
  Company Number: US-ROCHE-2033733

PATIENT
  Sex: Female

DRUGS (1)
  1. OCREVUS [Suspect]
     Active Substance: OCRELIZUMAB
     Indication: PRIMARY PROGRESSIVE MULTIPLE SCLEROSIS
     Dosage: 2 WEEKS APART FOR FIRST DOSE AND SECOND INFUSION RECEIVED ON 03/AUG/2017.
     Route: 042
     Dates: start: 201707

REACTIONS (3)
  - Hypothyroidism [Unknown]
  - Encephalopathy [Not Recovered/Not Resolved]
  - Urinary tract infection [Unknown]
